FAERS Safety Report 12289195 (Version 2)
Quarter: 2016Q2

REPORT INFORMATION
  Report Type: Spontaneous
  Country: IN (occurrence: IN)
  Receive Date: 20160421
  Receipt Date: 20160505
  Transmission Date: 20160815
  Serious: Yes (Hospitalization, Other)
  Sender: FDA-Public Use
  Company Number: IN-009507513-1604IND013577

PATIENT
  Age: 69 Year
  Sex: Female
  Weight: 62 kg

DRUGS (1)
  1. JANUMET [Suspect]
     Active Substance: METFORMIN HYDROCHLORIDE\SITAGLIPTIN PHOSPHATE
     Indication: DIABETES MELLITUS
     Dosage: 2 DF, BID (STRENGTH: 50/1000 (UNITS NOT PROVIDED)
     Route: 048

REACTIONS (3)
  - Multiple organ dysfunction syndrome [Unknown]
  - Kidney infection [Unknown]
  - Mechanical ventilation [Unknown]
